FAERS Safety Report 8838683 (Version 8)
Quarter: 2015Q3

REPORT INFORMATION
  Report Type: Spontaneous
  Country: US (occurrence: US)
  Receive Date: 20121012
  Receipt Date: 20150819
  Transmission Date: 20151125
  Serious: Yes (Hospitalization, Other)
  Sender: FDA-Public Use
  Company Number: US-009507513-1210USA003237

PATIENT
  Sex: Male

DRUGS (4)
  1. PROPECIA [Suspect]
     Active Substance: FINASTERIDE
     Dosage: 1 MG, QD
     Route: 048
     Dates: start: 200904, end: 20110809
  2. SYNTHROID [Concomitant]
     Active Substance: LEVOTHYROXINE SODIUM
     Indication: THYROID DISORDER
     Dosage: UNK
     Route: 065
     Dates: start: 1995
  3. PROPECIA [Suspect]
     Active Substance: FINASTERIDE
     Indication: ALOPECIA
     Dosage: 1 MG, QD
     Route: 048
     Dates: start: 2001, end: 200902
  4. FINASTERIDE. [Suspect]
     Active Substance: FINASTERIDE
     Indication: ALOPECIA
     Dosage: 5 MG, UNK
     Dates: start: 20111228, end: 20120207

REACTIONS (27)
  - Cognitive disorder [Not Recovered/Not Resolved]
  - Penile wart [Unknown]
  - Adverse event [Unknown]
  - Hepatitis [Unknown]
  - Inguinal hernia [Unknown]
  - Hypogonadism [Unknown]
  - Anxiety [Unknown]
  - Nephrolithiasis [Unknown]
  - Spontaneous penile erection [Unknown]
  - Hernia [Unknown]
  - Sexual dysfunction [Not Recovered/Not Resolved]
  - Rhabdomyolysis [Unknown]
  - Testicular failure [Unknown]
  - Dysuria [Unknown]
  - Prostatitis [Unknown]
  - Blood testosterone decreased [Unknown]
  - Nasal cavity mass [Unknown]
  - Loss of libido [Unknown]
  - Nephrolithiasis [Unknown]
  - Sinus disorder [Unknown]
  - Ejaculation disorder [Unknown]
  - Erectile dysfunction [Unknown]
  - Hypothyroidism [Unknown]
  - Gastrooesophageal reflux disease [Unknown]
  - Depression [Unknown]
  - Sleep apnoea syndrome [Unknown]
  - Gastritis [Unknown]

NARRATIVE: CASE EVENT DATE: 2001
